FAERS Safety Report 9730305 (Version 1)
Quarter: 2013Q4

REPORT INFORMATION
  Report Type: Spontaneous
  Country: US (occurrence: US)
  Receive Date: 20131202
  Receipt Date: 20131202
  Transmission Date: 20140711
  Serious: Yes (Other)
  Sender: FDA-Public Use
  Company Number: US-PFIZER INC-2013340513

PATIENT
  Age: 58 Year
  Sex: Female
  Weight: 59 kg

DRUGS (3)
  1. ESTRING [Suspect]
     Indication: ATROPHIC VULVOVAGINITIS
     Dosage: 1 DF, EVERY 3 MONTHS
     Route: 067
     Dates: start: 20120227, end: 20131106
  2. ESTRING [Suspect]
     Indication: VULVOVAGINAL PAIN
  3. ESTRING [Suspect]
     Indication: MENOPAUSAL SYMPTOMS

REACTIONS (1)
  - Cystitis klebsiella [Recovered/Resolved]
